FAERS Safety Report 5678561-4 (Version None)
Quarter: 2008Q1

REPORT INFORMATION
  Report Type: 
  Country: None (occurrence: None)
  Receive Date: 20080325
  Receipt Date: 20080311
  Transmission Date: 20080703
  Serious: Yes (Death, Hospitalization)
  Sender: FDA-Public Use
  Company Number: IL-AMGEN-UK254747

PATIENT
  Age: 50 Year
  Sex: Male

DRUGS (10)
  1. NEULASTIM [Suspect]
     Indication: CHEMOTHERAPY
     Route: 058
     Dates: start: 20071011, end: 20071214
  2. ETOPOSIDE [Concomitant]
     Indication: SMALL CELL LUNG CANCER STAGE UNSPECIFIED
     Dates: start: 20071008
  3. CISPLATIN [Concomitant]
     Indication: SMALL CELL LUNG CANCER STAGE UNSPECIFIED
     Dates: start: 20071001, end: 20071001
  4. CARBOPLATIN [Concomitant]
     Dates: start: 20071030
  5. ATENOLOL [Concomitant]
  6. ASPIRIN [Concomitant]
     Dates: start: 19980101
  7. ATORVASTATIN CALCIUM [Concomitant]
  8. LANSOPRAZOLE [Concomitant]
  9. OXYCONTIN [Concomitant]
  10. DOXAZOSIN [Concomitant]

REACTIONS (8)
  - ADVERSE EVENT [None]
  - CONFUSIONAL STATE [None]
  - CONVULSION [None]
  - DIZZINESS [None]
  - LEUKOCYTOSIS [None]
  - NAUSEA [None]
  - SYNCOPE [None]
  - VOMITING [None]
